FAERS Safety Report 8542222-4 (Version None)
Quarter: 2012Q3

REPORT INFORMATION
  Report Type: 
  Country: None (occurrence: None)
  Receive Date: 20120726
  Receipt Date: 20111013
  Transmission Date: 20120928
  Serious: No
  Sender: FDA-Public Use
  Company Number: US-ASTRAZENECA-2011SE61692

PATIENT
  Age: 59 Year
  Sex: Female
  Weight: 104.3 kg

DRUGS (2)
  1. DIVALPROEX SODIUM [Concomitant]
     Indication: BIPOLAR I DISORDER
  2. SEROQUEL [Suspect]
     Indication: BIPOLAR I DISORDER
     Route: 048

REACTIONS (1)
  - FALL [None]
